FAERS Safety Report 23365717 (Version 1)
Quarter: 2024Q1

REPORT INFORMATION
  Report Type: Spontaneous
  Country: US (occurrence: None)
  Receive Date: 20240103
  Receipt Date: 20240103
  Transmission Date: 20240409
  Serious: Yes (unspecified)
  Sender: FDA-Public Use
  Company Number: None

PATIENT
  Age: 55 Year
  Sex: Female
  Weight: 69.75 kg

DRUGS (2)
  1. PROPOFOL [Suspect]
     Active Substance: PROPOFOL
     Dosage: OTHER STRENGTH : I DON^T KNOW;?OTHER ROUTE : IV FOR SURGERY;?
     Route: 050
     Dates: start: 20231027, end: 20231027
  2. ARMOUR THYROID [Concomitant]
     Active Substance: THYROID, PORCINE

REACTIONS (8)
  - Burning sensation [None]
  - Pain in extremity [None]
  - Injection site pain [None]
  - Dehydration [None]
  - Eye irritation [None]
  - Asthenia [None]
  - Lipids increased [None]
  - Injury [None]

NARRATIVE: CASE EVENT DATE: 20231027
